FAERS Safety Report 7675050-2 (Version None)
Quarter: 2011Q3

REPORT INFORMATION
  Report Type: 
  Country: None (occurrence: None)
  Receive Date: 20110810
  Receipt Date: 20110728
  Transmission Date: 20111222
  Serious: Yes (Hospitalization)
  Sender: FDA-Public Use
  Company Number: FR-SANOFI-AVENTIS-2011SA048260

PATIENT
  Age: 12 Year
  Sex: Female
  Weight: 22.9 kg

DRUGS (23)
  1. ACETAMINOPHEN [Suspect]
     Route: 048
     Dates: start: 20110521, end: 20110521
  2. PANTOPRAZOLE [Suspect]
     Indication: GASTRITIS PROPHYLAXIS
     Route: 042
     Dates: start: 20110508, end: 20110518
  3. ATARAX [Suspect]
     Route: 048
     Dates: start: 20110521, end: 20110521
  4. CHLORPROMAZINE HCL [Concomitant]
     Route: 065
     Dates: start: 20110512, end: 20110513
  5. FORLAX [Concomitant]
     Route: 065
  6. VANCOMYCIN [Concomitant]
     Route: 065
  7. PRIMPERAN TAB [Suspect]
     Route: 048
     Dates: start: 20110511, end: 20110523
  8. NUBAIN [Concomitant]
     Indication: PAIN
     Route: 065
     Dates: start: 20110507, end: 20110515
  9. OMEPRAZOLE [Suspect]
     Indication: GASTRITIS PROPHYLAXIS
     Route: 048
     Dates: start: 20110519, end: 20110523
  10. TIORFAN [Concomitant]
     Route: 065
  11. KEFANDOL [Concomitant]
     Route: 065
  12. OMEPRAZOLE [Suspect]
     Route: 048
     Dates: start: 20110524, end: 20110524
  13. GENTAMICIN [Concomitant]
     Route: 065
  14. PRIMPERAN TAB [Suspect]
     Route: 048
     Dates: start: 20110511, end: 20110523
  15. ACETAMINOPHEN [Concomitant]
     Route: 065
     Dates: start: 20110505, end: 20110518
  16. ACETAMINOPHEN [Suspect]
     Indication: PAIN
     Dosage: AS NEEDED
     Route: 048
     Dates: start: 20110520, end: 20110520
  17. PIPERACILLIN AND TAZOBACTAM [Concomitant]
     Route: 065
  18. ACETAMINOPHEN [Suspect]
     Route: 048
     Dates: start: 20110522, end: 20110523
  19. LOVENOX [Suspect]
     Indication: THROMBOSIS PROPHYLAXIS
     Route: 058
     Dates: start: 20110505, end: 20110523
  20. ATARAX [Suspect]
     Route: 048
     Dates: start: 20110519, end: 20110519
  21. ATARAX [Suspect]
     Route: 048
     Dates: start: 20110522, end: 20110522
  22. CHLORPROMAZINE HCL [Concomitant]
     Route: 065
     Dates: start: 20110505, end: 20110511
  23. FRESUBIN [Concomitant]
     Route: 065
     Dates: start: 20110516

REACTIONS (4)
  - HEPATITIS ACUTE [None]
  - VOMITING [None]
  - JAUNDICE [None]
  - MIXED LIVER INJURY [None]
